FAERS Safety Report 12839290 (Version 8)
Quarter: 2017Q3

REPORT INFORMATION
  Report Type: Spontaneous
  Country: PR (occurrence: PR)
  Receive Date: 20161012
  Receipt Date: 20170809
  Transmission Date: 20171127
  Serious: No
  Sender: FDA-Public Use
  Company Number: PR-PFIZER INC-2016470318

PATIENT
  Age: 76 Year
  Sex: Female
  Weight: 53.52 kg

DRUGS (6)
  1. IBRANCE [Suspect]
     Active Substance: PALBOCICLIB
     Dosage: 100 MG, DAILY
     Route: 048
  2. IBRANCE [Suspect]
     Active Substance: PALBOCICLIB
     Dosage: 100 MG, DAILY
     Route: 048
  3. IBRANCE [Suspect]
     Active Substance: PALBOCICLIB
     Dosage: 75 MG, DAILY (21 DAYS)
     Route: 048
     Dates: start: 20160816
  4. FASLODEX [Concomitant]
     Active Substance: FULVESTRANT
     Dosage: UNK
  5. IBRANCE [Suspect]
     Active Substance: PALBOCICLIB
     Dosage: 75 MG, DAILY
     Route: 048
     Dates: start: 20161128
  6. IBRANCE [Suspect]
     Active Substance: PALBOCICLIB
     Indication: BREAST CANCER METASTATIC
     Dosage: 100 MG, DAILY
     Route: 048
     Dates: start: 20160816

REACTIONS (10)
  - Rash generalised [Unknown]
  - Pain [Unknown]
  - Headache [Unknown]
  - White blood cell count decreased [Unknown]
  - Peripheral swelling [Unknown]
  - Influenza [Unknown]
  - Abdominal discomfort [Unknown]
  - Back pain [Unknown]
  - Fall [Unknown]
  - Ear haemorrhage [Unknown]
